FAERS Safety Report 13521290 (Version 1)
Quarter: 2017Q2

REPORT INFORMATION
  Report Type: Spontaneous
  Country: US (occurrence: US)
  Receive Date: 20170505
  Receipt Date: 20170505
  Transmission Date: 20170830
  Serious: Yes (Life-Threatening, Other)
  Sender: FDA-Public Use
  Company Number: None

PATIENT
  Age: 53 Year
  Sex: Female
  Weight: 82.35 kg

DRUGS (13)
  1. LIPITOR [Concomitant]
     Active Substance: ATORVASTATIN CALCIUM
  2. METAMUCIL [Concomitant]
     Active Substance: PLANTAGO SEED
  3. FISH OIL [Concomitant]
     Active Substance: FISH OIL
  4. CITRUCEL [Concomitant]
     Active Substance: METHYLCELLULOSE (4000 MPA.S)
  5. PANTOPRAZOLE SOD (PROTONIX) [Concomitant]
  6. MULTI VITAMIN [Concomitant]
     Active Substance: VITAMINS
  7. VITAMIN D3 [Concomitant]
     Active Substance: CHOLECALCIFEROL
  8. VITAMIN B12 [Concomitant]
     Active Substance: CYANOCOBALAMIN
  9. VIBERZI [Suspect]
     Active Substance: ELUXADOLINE
     Indication: IRRITABLE BOWEL SYNDROME
     Dosage: ?          QUANTITY:2 TABLET(S);?
     Route: 048
     Dates: start: 20170428, end: 20170429
  10. MOVE FREE JOINT HEALTH GLUCOSAMINE CHONDROITIN [Concomitant]
  11. VITAMIN C [Concomitant]
     Active Substance: ASCORBIC ACID
  12. AMITRIPTYLINE HCL (ELAVIL) [Concomitant]
  13. CALCIUM [Concomitant]
     Active Substance: CALCIUM

REACTIONS (8)
  - Musculoskeletal pain [None]
  - Feeling abnormal [None]
  - Dizziness [None]
  - Abdominal pain upper [None]
  - Cholecystectomy [None]
  - Diarrhoea [None]
  - Sphincter of Oddi dysfunction [None]
  - Back pain [None]

NARRATIVE: CASE EVENT DATE: 20170429
